FAERS Safety Report 15986967 (Version 2)
Quarter: 2019Q2

REPORT INFORMATION
  Report Type: Spontaneous
  Country: US (occurrence: US)
  Receive Date: 20190220
  Receipt Date: 20190517
  Transmission Date: 20190711
  Serious: Yes (Other)
  Sender: FDA-Public Use
  Company Number: US-ASTRAZENECA-2018SF26437

PATIENT
  Age: 20274 Day
  Sex: Female

DRUGS (15)
  1. TOPAMAX [Concomitant]
     Active Substance: TOPIRAMATE
     Route: 065
     Dates: start: 20060101, end: 20130101
  2. CLONAZEPAM. [Concomitant]
     Active Substance: CLONAZEPAM
     Route: 065
     Dates: start: 20060101, end: 20130101
  3. QUETIAPINE. [Concomitant]
     Active Substance: QUETIAPINE
  4. PRILOSEC [Suspect]
     Active Substance: OMEPRAZOLE MAGNESIUM
     Indication: GASTROOESOPHAGEAL REFLUX DISEASE
     Dosage: GENERIC
     Route: 065
     Dates: start: 20111201, end: 20140710
  5. LAMOTRIGINE. [Concomitant]
     Active Substance: LAMOTRIGINE
  6. SEROQUEL [Concomitant]
     Active Substance: QUETIAPINE FUMARATE
     Route: 065
     Dates: start: 20060101, end: 20130101
  7. METOPROLOL. [Concomitant]
     Active Substance: METOPROLOL
  8. AMOXICILLIN. [Concomitant]
     Active Substance: AMOXICILLIN
  9. PRILOSEC [Suspect]
     Active Substance: OMEPRAZOLE MAGNESIUM
     Indication: GASTROOESOPHAGEAL REFLUX DISEASE
     Route: 065
     Dates: start: 2011, end: 2014
  10. PRILOSEC [Suspect]
     Active Substance: OMEPRAZOLE MAGNESIUM
     Indication: GASTROOESOPHAGEAL REFLUX DISEASE
     Dosage: GENERIC
     Route: 065
     Dates: start: 20130924
  11. FLUCONAZOLE. [Concomitant]
     Active Substance: FLUCONAZOLE
  12. PRILOSEC [Suspect]
     Active Substance: OMEPRAZOLE MAGNESIUM
     Indication: GASTROOESOPHAGEAL REFLUX DISEASE
     Route: 048
     Dates: start: 20111201, end: 20140710
  13. SUMATRIPTAN. [Concomitant]
     Active Substance: SUMATRIPTAN
     Route: 065
     Dates: start: 20060101, end: 20130101
  14. FAMODINE [Concomitant]
     Active Substance: FAMOTIDINE
     Route: 065
     Dates: start: 20060101, end: 20130101
  15. CHLORPROMAZINE. [Concomitant]
     Active Substance: CHLORPROMAZINE

REACTIONS (2)
  - Chronic kidney disease [Unknown]
  - Renal failure [Unknown]

NARRATIVE: CASE EVENT DATE: 20130924
